FAERS Safety Report 13329212 (Version 1)
Quarter: 2017Q1

REPORT INFORMATION
  Report Type: Spontaneous
  Country: US (occurrence: US)
  Receive Date: 20170313
  Receipt Date: 20170313
  Transmission Date: 20170428
  Serious: Yes (Hospitalization)
  Sender: FDA-Public Use
  Company Number: None

PATIENT
  Age: 70 Year
  Sex: Female
  Weight: 71.73 kg

DRUGS (17)
  1. MARCAINE [Suspect]
     Active Substance: BUPIVACAINE HYDROCHLORIDE
     Indication: ARTHRALGIA
     Dates: start: 20161027
  2. XARELTO [Concomitant]
     Active Substance: RIVAROXABAN
  3. ROBAXIN [Concomitant]
     Active Substance: METHOCARBAMOL
  4. ESTRACE [Concomitant]
     Active Substance: ESTRADIOL
  5. MAGNESIUM [Concomitant]
     Active Substance: MAGNESIUM
  6. TIKOSYN [Suspect]
     Active Substance: DOFETILIDE
     Indication: ATRIAL FIBRILLATION
     Route: 048
     Dates: start: 20130113
  7. AMLODIPINE [Concomitant]
     Active Substance: AMLODIPINE BESYLATE
  8. CRESTOR [Concomitant]
     Active Substance: ROSUVASTATIN CALCIUM
  9. RANITIDINE. [Concomitant]
     Active Substance: RANITIDINE
  10. ASPIRIN. [Concomitant]
     Active Substance: ASPIRIN
  11. VOLTAREN [Concomitant]
     Active Substance: DICLOFENAC SODIUM
  12. METOPROLOL. [Concomitant]
     Active Substance: METOPROLOL
  13. GABAPENTIN. [Concomitant]
     Active Substance: GABAPENTIN
  14. VIT. D [Concomitant]
  15. NEXIUM [Concomitant]
     Active Substance: ESOMEPRAZOLE MAGNESIUM
  16. MARCAINE [Suspect]
     Active Substance: BUPIVACAINE HYDROCHLORIDE
     Indication: ARTHRITIS
     Dates: start: 20161027
  17. EFFIENT [Concomitant]
     Active Substance: PRASUGREL HYDROCHLORIDE

REACTIONS (2)
  - Vascular stent occlusion [None]
  - Angina unstable [None]

NARRATIVE: CASE EVENT DATE: 20161029
